FAERS Safety Report 5269424-7 (Version None)
Quarter: 2007Q1

REPORT INFORMATION
  Report Type: 
  Country: None (occurrence: None)
  Receive Date: 20070320
  Receipt Date: 20070316
  Transmission Date: 20070707
  Serious: Yes (Hospitalization, Other)
  Sender: FDA-Public Use
  Company Number: US-RB-005560-07

PATIENT
  Sex: Male

DRUGS (3)
  1. SUBOXONE [Suspect]
     Dosage: UNKNOWN DOSE
     Route: 060
  2. FIORINAL [Concomitant]
     Dosage: DOSE UNKNOWN
     Route: 048
  3. COUMADIN [Concomitant]

REACTIONS (1)
  - CONVULSION [None]
